FAERS Safety Report 12089102 (Version 1)
Quarter: 2016Q1

REPORT INFORMATION
  Report Type: Spontaneous
  Country: US (occurrence: None)
  Receive Date: 20160217
  Receipt Date: 20160217
  Transmission Date: 20160526
  Serious: Yes (Life-Threatening, Hospitalization, Disabling, Other)
  Sender: FDA-Public Use
  Company Number: None

PATIENT
  Age: 76 Year
  Sex: Female
  Weight: 78.02 kg

DRUGS (13)
  1. DIGESTIVE ENZYMES [Concomitant]
     Active Substance: UNSPECIFIED INGREDIENT
  2. SUPER OMEGA 3 [Concomitant]
  3. PLAVIX [Suspect]
     Active Substance: CLOPIDOGREL BISULFATE
     Indication: RETINAL VASCULAR OCCLUSION
     Route: 048
     Dates: end: 20150406
  4. PROBIOTICS [Concomitant]
     Active Substance: PROBIOTICS NOS
  5. DEXILANT [Concomitant]
     Active Substance: DEXLANSOPRAZOLE
  6. ADVAIR HFA [Concomitant]
     Active Substance: FLUTICASONE PROPIONATE\SALMETEROL XINAFOATE
  7. COQ10 [Concomitant]
     Active Substance: UBIDECARENONE
  8. MULTIVITAMINS [Concomitant]
     Active Substance: VITAMINS
  9. AMLODOPINE [Concomitant]
  10. SIMVASTIN [Concomitant]
     Active Substance: SIMVASTATIN
  11. SPIRONOLACTONE. [Concomitant]
     Active Substance: SPIRONOLACTONE
  12. LIFE EXTENSION PRODUCTS [Concomitant]
  13. SOLOTOL [Concomitant]

REACTIONS (3)
  - Internal haemorrhage [None]
  - Fatigue [None]
  - Blood count abnormal [None]

NARRATIVE: CASE EVENT DATE: 20150406
